FAERS Safety Report 7555091-6 (Version None)
Quarter: 2011Q2

REPORT INFORMATION
  Report Type: 
  Country: None (occurrence: None)
  Receive Date: 20110617
  Receipt Date: 20110615
  Transmission Date: 20111010
  Serious: No
  Sender: FDA-Public Use
  Company Number: US-PFIZER INC-2011132156

PATIENT
  Sex: Male

DRUGS (5)
  1. ACETAMINOPHEN AND HYDROCODONE BITARTRATE [Concomitant]
     Dosage: CAP 5-500 MG
  2. SUTENT [Suspect]
     Dosage: 50 MG, 1X/DAY
     Route: 048
  3. LEVOTHYROXINE [Concomitant]
     Dosage: 175 UG, UNK
  4. METOPROLOL [Concomitant]
     Dosage: 25 MG, UNK
  5. ACETYLSALICYLIC ACID [Concomitant]
     Dosage: 81 MG, UNK

REACTIONS (2)
  - DIARRHOEA [None]
  - BURNING SENSATION [None]
